FAERS Safety Report 7326615-9 (Version None)
Quarter: 2011Q1

REPORT INFORMATION
  Report Type: 
  Country: None (occurrence: None)
  Receive Date: 20110302
  Receipt Date: 20110217
  Transmission Date: 20110831
  Serious: Yes (Hospitalization)
  Sender: FDA-Public Use
  Company Number: US-RB-021662-11

PATIENT
  Age: 39 Year
  Sex: Male

DRUGS (1)
  1. MUCINEX DM [Suspect]
     Dosage: TABLET TAKEN ON 15-FEB-2011
     Route: 048

REACTIONS (4)
  - HEADACHE [None]
  - CHEST PAIN [None]
  - COUGH [None]
  - VOMITING [None]
